FAERS Safety Report 17131647 (Version 1)
Quarter: 2019Q4

REPORT INFORMATION
  Report Type: Spontaneous
  Country: US (occurrence: US)
  Receive Date: 20191209
  Receipt Date: 20191209
  Transmission Date: 20200122
  Serious: No
  Sender: FDA-Public Use
  Company Number: US-UCBSA-2016043799

PATIENT

DRUGS (3)
  1. KEPPRA [Suspect]
     Active Substance: LEVETIRACETAM
     Indication: PRODUCT USED FOR UNKNOWN INDICATION
  2. WARFARIN [Suspect]
     Active Substance: WARFARIN
     Indication: THROMBOSIS
     Dosage: 5-7.5MG DAILY
  3. WARFARIN [Suspect]
     Active Substance: WARFARIN
     Dosage: STEADILY INCREASED TO THE CURRENT DOSE OF 50-60 MG DAILY

REACTIONS (1)
  - Drug resistance [Unknown]
